FAERS Safety Report 6014651 (Version 1)
Quarter: 2020Q3

REPORT INFORMATION
  Report Type: Report from Study
  Country: US (occurrence: US)
  Receive Date: 20060329
  Receipt Date: 20060329
  Transmission Date: 20201104
  Serious: Yes (Hospitalization)
  Sender: FDA-Public Use
  Company Number: US-ROCHE-432830

PATIENT
  Age: 60 Year
  Sex: Male
  Weight: 81.2 kg

DRUGS (13)
  1. PREDNISONE. [Suspect]
     Active Substance: PREDNISONE
     Route: 048
     Dates: start: 20040325
  2. ASCORBIC ACID\ASPIRIN\PHENYLEPHRINE [Concomitant]
     Dates: start: 20031012
  3. MYCOPHENOLATE MOFETIL. [Suspect]
     Active Substance: MYCOPHENOLATE MOFETIL
     Route: 048
     Dates: start: 20040425
  4. LASIX [Concomitant]
     Active Substance: FUROSEMIDE
     Dates: start: 20040716
  5. MAGNESIUM [Concomitant]
     Active Substance: MAGNESIUM
     Dates: start: 20040107
  6. AVAPRO [Concomitant]
     Active Substance: IRBESARTAN
     Dates: start: 20041006, end: 20051230
  7. LIPITOR [Concomitant]
     Active Substance: ATORVASTATIN CALCIUM
     Dates: start: 20031112
  8. AVANDIA [Concomitant]
     Active Substance: ROSIGLITAZONE MALEATE
     Dates: start: 20031112
  9. FERROUS SULFATE. [Concomitant]
     Active Substance: FERROUS SULFATE
     Dates: start: 20040301
  10. PROTONIX [Concomitant]
     Active Substance: PANTOPRAZOLE SODIUM
     Dates: start: 20031112
  11. SIROLIMUS. [Suspect]
     Active Substance: SIROLIMUS
     Route: 048
     Dates: start: 20040408
  12. PROCRIT [Concomitant]
     Active Substance: ERYTHROPOIETIN
     Dates: start: 20031112
  13. ASA [Concomitant]
     Active Substance: ASPIRIN
     Dates: start: 20030627

REACTIONS (1)
  - Fluid overload [Unknown]

NARRATIVE: CASE EVENT DATE: 20051227
